FAERS Safety Report 5134200-2 (Version None)
Quarter: 2006Q4

REPORT INFORMATION
  Report Type: 
  Country: None (occurrence: None)
  Receive Date: 20061019
  Receipt Date: 20061003
  Transmission Date: 20070319
  Serious: Yes (Death, Hospitalization)
  Sender: FDA-Public Use
  Company Number: 8018342

PATIENT
  Age: 22 Year
  Sex: Female

DRUGS (2)
  1. KEPPRA [Suspect]
     Indication: PARTIAL SEIZURES
     Dosage: 1000 MG/D
  2. TEGRETOL [Suspect]
     Indication: PARTIAL SEIZURES
     Dosage: 1000 MG/D

REACTIONS (22)
  - ACIDOSIS [None]
  - ACUTE HEPATIC FAILURE [None]
  - AGITATION [None]
  - CARDIAC FAILURE [None]
  - DRUG LEVEL BELOW THERAPEUTIC [None]
  - FALL [None]
  - HEPATIC NECROSIS [None]
  - HEPATOCELLULAR DAMAGE [None]
  - HEPATOTOXICITY [None]
  - HYPERTHERMIA [None]
  - HYPOTENSION [None]
  - LIPOMATOSIS [None]
  - PARTIAL SEIZURES WITH SECONDARY GENERALISATION [None]
  - POISONING [None]
  - POSTICTAL PARALYSIS [None]
  - PULMONARY CONGESTION [None]
  - PULMONARY OEDEMA [None]
  - RENAL FAILURE [None]
  - RENAL TUBULAR NECROSIS [None]
  - SHOCK [None]
  - TACHYCARDIA [None]
  - THERAPY NON-RESPONDER [None]
